FAERS Safety Report 5213942-4 (Version None)
Quarter: 2007Q1

REPORT INFORMATION
  Report Type: 
  Country: None (occurrence: None)
  Receive Date: 20070112
  Receipt Date: 20070102
  Transmission Date: 20070707
  Serious: Yes (Death, Hospitalization)
  Sender: FDA-Public Use
  Company Number: 114-C5013-06121297

PATIENT
  Age: 61 Year
  Sex: Male

DRUGS (7)
  1. CC-5013 (LENALIDOMIDE) (CAPSULES) [Suspect]
     Indication: MULTIPLE MYELOMA
     Dosage: 10 MG, ORAL
     Route: 048
     Dates: start: 20061023, end: 20061031
  2. DEXAMETHASONE TAB [Suspect]
     Indication: MULTIPLE MYELOMA
     Dosage: 4 MG
     Dates: start: 20060401
  3. METFORMIN HCL [Concomitant]
  4. SALBUTAMOL (SALBUTAMOL) [Concomitant]
  5. DURAGESIC-100 [Concomitant]
  6. ARANESP [Concomitant]
  7. ALFUZOSIN (ALFUZOSIN) [Concomitant]

REACTIONS (1)
  - NECROTISING FASCIITIS [None]
